FAERS Safety Report 18726681 (Version 8)
Quarter: 2022Q3

REPORT INFORMATION
  Report Type: Spontaneous
  Country: US (occurrence: US)
  Receive Date: 20210111
  Receipt Date: 20220928
  Transmission Date: 20221027
  Serious: No
  Sender: FDA-Public Use
  Company Number: US-PFIZER INC-2021010438

PATIENT
  Age: 50 Year
  Sex: Female
  Weight: 99.79 kg

DRUGS (1)
  1. XELJANZ [Suspect]
     Active Substance: TOFACITINIB CITRATE
     Indication: Colitis ulcerative
     Dosage: 10 MG, 2X/DAY

REACTIONS (6)
  - Learning disability [Unknown]
  - Anxiety [Unknown]
  - COVID-19 [Unknown]
  - Memory impairment [Unknown]
  - Therapeutic response unexpected [Unknown]
  - Product dispensing error [Unknown]
